FAERS Safety Report 5206882-8 (Version None)
Quarter: 2006Q4

REPORT INFORMATION
  Report Type: 
  Country: None (occurrence: None)
  Receive Date: 20061030
  Receipt Date: 20060920
  Transmission Date: 20070319
  Serious: No
  Sender: FDA-Public Use
  Company Number: 257385

PATIENT
  Sex: Male

DRUGS (2)
  1. LEVEMIR [Suspect]
     Indication: INSULIN-REQUIRING TYPE II DIABETES MELLITUS
     Dosage: SEE IMAGE
     Route: 058
     Dates: start: 20060901, end: 20060901
  2. LEVEMIR [Suspect]
     Indication: INSULIN-REQUIRING TYPE II DIABETES MELLITUS
     Dosage: SEE IMAGE
     Route: 058
     Dates: start: 20060901

REACTIONS (2)
  - HYPOGLYCAEMIA [None]
  - URINARY INCONTINENCE [None]
